FAERS Safety Report 7867257-6 (Version None)
Quarter: 2011Q4

REPORT INFORMATION
  Report Type: 
  Country: None (occurrence: None)
  Receive Date: 20111026
  Receipt Date: 20111012
  Transmission Date: 20120403
  Serious: Yes (Hospitalization)
  Sender: FDA-Public Use
  Company Number: 2011MA013478

PATIENT
  Age: 86 Year
  Sex: Male
  Weight: 48 kg

DRUGS (7)
  1. DILTIAZEM HCL [Concomitant]
  2. ZOPICLONE [Concomitant]
  3. ISONIAZID [Suspect]
     Indication: PULMONARY TUBERCULOSIS
     Dosage: PO
     Route: 048
     Dates: start: 20091201
  4. RIFAMPIN [Suspect]
     Indication: PULMONARY TUBERCULOSIS
     Dosage: 25 MG;PO
     Route: 048
     Dates: start: 20091201
  5. ETHAMBUTOL HYDROCHLORIDE [Suspect]
     Indication: PULMONARY TUBERCULOSIS
     Dosage: PO
     Route: 048
     Dates: start: 20091201
  6. ISOSORBIDE DINITRATE [Concomitant]
  7. AMLODIPINE [Concomitant]

REACTIONS (6)
  - PLEURAL EFFUSION [None]
  - DIARRHOEA [None]
  - INTERSTITIAL LUNG DISEASE [None]
  - PYREXIA [None]
  - FATIGUE [None]
  - RASH ERYTHEMATOUS [None]
